FAERS Safety Report 6189003-7 (Version None)
Quarter: 2009Q2

REPORT INFORMATION
  Report Type: 
  Country: None (occurrence: None)
  Receive Date: 20090511
  Receipt Date: 20090505
  Transmission Date: 20091009
  Serious: Yes (Life-Threatening, Disabling, Other)
  Sender: FDA-Public Use
  Company Number: WAES 0904USA03978

PATIENT
  Age: 82 Year
  Sex: Male
  Weight: 82 kg

DRUGS (9)
  1. VYTORIN [Suspect]
     Indication: ACUTE CORONARY SYNDROME
     Dosage: 10-40 MG/DAILY, PO
     Route: 048
     Dates: start: 20080809, end: 20090423
  2. TAB PLACEBO (UNSPECIFIED) [Suspect]
     Indication: ACUTE CORONARY SYNDROME
     Dosage: PO
     Route: 048
     Dates: start: 20080809, end: 20090423
  3. ASPIRIN [Concomitant]
  4. BISOPROLOL [Concomitant]
  5. CLOPIDOGREL BISULFATE [Concomitant]
  6. FUROSEMIDE [Concomitant]
  7. GLYBURIDE [Concomitant]
  8. LANSOPRAZOLE [Concomitant]
  9. RAMIPRIL [Concomitant]

REACTIONS (4)
  - METASTASES TO LIVER [None]
  - METASTASES TO LUNG [None]
  - METASTASES TO LYMPH NODES [None]
  - RECTAL CANCER [None]
